FAERS Safety Report 9005992 (Version 1)
Quarter: 2013Q1

REPORT INFORMATION
  Report Type: Spontaneous
  Country: US (occurrence: US)
  Receive Date: 20130109
  Receipt Date: 20130109
  Transmission Date: 20140127
  Serious: No
  Sender: FDA-Public Use
  Company Number: US-PFIZER INC-2013007445

PATIENT
  Age: 32 Year
  Sex: Male

DRUGS (3)
  1. CHANTIX [Suspect]
     Dosage: 0.5 MG, 1X/DAY
     Dates: start: 20120103
  2. LORAZEPAM [Interacting]
     Dosage: UNK
  3. HYDROCODONE [Interacting]
     Dosage: UNK

REACTIONS (4)
  - Drug ineffective [Unknown]
  - Feeling jittery [Unknown]
  - Pain [Unknown]
  - Inhibitory drug interaction [Unknown]
